FAERS Safety Report 4523111-9 (Version None)
Quarter: 2004Q4

REPORT INFORMATION
  Report Type: 
  Country: None (occurrence: None)
  Receive Date: 20041208
  Receipt Date: 20041126
  Transmission Date: 20050328
  Serious: Yes (Death, Other)
  Sender: FDA-Public Use
  Company Number: 2004-11-1572

PATIENT
  Sex: Female

DRUGS (3)
  1. TEMODAL [Suspect]
     Indication: GLIOBLASTOMA
     Dosage: ORAL
     Route: 048
  2. RADIATION THERAPY [Concomitant]
  3. BACTRIM [Concomitant]

REACTIONS (2)
  - APLASIA [None]
  - INTRACRANIAL PRESSURE INCREASED [None]
